FAERS Safety Report 9452999 (Version 1)
Quarter: 2013Q3

REPORT INFORMATION
  Report Type: Spontaneous
  Country: DE (occurrence: DE)
  Receive Date: 20130812
  Receipt Date: 20130812
  Transmission Date: 20140515
  Serious: Yes (Death)
  Sender: FDA-Public Use
  Company Number: DE-CUBIST PHARMACEUTICAL, INC.-2012CBST000056

PATIENT
  Sex: 0

DRUGS (3)
  1. CUBICIN [Suspect]
     Indication: MEDIASTINITIS
     Dosage: 6 MG/KG, SINGLE
     Route: 042
  2. CUBICIN [Suspect]
     Indication: OFF LABEL USE
     Dosage: 4 MG/KG, QD
     Route: 042
  3. CEFUROXIME [Suspect]
     Indication: ANTIBIOTIC PROPHYLAXIS
     Dosage: 1.5 G, X 3

REACTIONS (2)
  - Sepsis [Fatal]
  - Multi-organ failure [Fatal]
